FAERS Safety Report 12813613 (Version 1)
Quarter: 2016Q4

REPORT INFORMATION
  Report Type: Spontaneous
  Country: US (occurrence: US)
  Receive Date: 20161005
  Receipt Date: 20161005
  Transmission Date: 20170207
  Serious: No
  Sender: FDA-Public Use
  Company Number: US-AMGEN-USASP2016034706

PATIENT
  Age: 83 Year
  Sex: Female

DRUGS (2)
  1. NOVOCAINE [Concomitant]
     Active Substance: PROCAINE
  2. PROLIA [Suspect]
     Active Substance: DENOSUMAB
     Indication: OSTEOPOROSIS POSTMENOPAUSAL
     Dosage: UNK
     Route: 065
     Dates: start: 2015

REACTIONS (9)
  - Frustration tolerance decreased [Unknown]
  - Musculoskeletal pain [Unknown]
  - Cardiac disorder [Unknown]
  - Pain in extremity [Unknown]
  - Hypoaesthesia [Unknown]
  - Sensory loss [Unknown]
  - Paraesthesia [Unknown]
  - Discomfort [Unknown]
  - Grip strength decreased [Unknown]
